FAERS Safety Report 23697787 (Version 4)
Quarter: 2024Q2

REPORT INFORMATION
  Report Type: Spontaneous
  Country: PR (occurrence: PR)
  Receive Date: 20240402
  Receipt Date: 20240506
  Transmission Date: 20240716
  Serious: No
  Sender: FDA-Public Use
  Company Number: PR-PFIZER INC-PV202400033935

PATIENT
  Age: 81 Year
  Sex: Male
  Weight: 58.96 kg

DRUGS (1)
  1. NIVESTYM [Suspect]
     Active Substance: FILGRASTIM-AAFI
     Indication: Anaemia
     Dosage: 300MCG/0.5ML
     Route: 042
     Dates: start: 20240305, end: 20240307

REACTIONS (2)
  - Device issue [Unknown]
  - Off label use [Unknown]
